FAERS Safety Report 24646364 (Version 1)
Quarter: 2024Q4

REPORT INFORMATION
  Report Type: Spontaneous
  Country: US (occurrence: US)
  Receive Date: 20241121
  Receipt Date: 20241121
  Transmission Date: 20250114
  Serious: No
  Sender: ASTELLAS
  Company Number: US-ASTELLAS-2024-AER-007527

PATIENT
  Sex: Female

DRUGS (1)
  1. IZERVAY [Suspect]
     Active Substance: AVACINCAPTAD PEGOL SODIUM
     Indication: Macular degeneration
     Dosage: 2 MG / 0.1 ML INTO RIGHT EYE, EVERY 4-8 WEEKS, AS NEEDED, AS PER DOCTOR^S ORDERS
     Route: 031
     Dates: start: 20240202

REACTIONS (2)
  - Intercepted product preparation error [Unknown]
  - Inadequate aseptic technique in use of product [Unknown]
